FAERS Safety Report 8153702-8 (Version None)
Quarter: 2012Q1

REPORT INFORMATION
  Report Type: 
  Country: None (occurrence: None)
  Receive Date: 20120221
  Receipt Date: 20120213
  Transmission Date: 20120608
  Serious: Yes (Hospitalization)
  Sender: FDA-Public Use
  Company Number: BR-GLAXOSMITHKLINE-A0964080A

PATIENT
  Sex: Female
  Weight: 80 kg

DRUGS (11)
  1. DAFLON [Concomitant]
     Indication: CARDIOVASCULAR DISORDER
  2. CRESTOR [Concomitant]
     Indication: BLOOD CHOLESTEROL INCREASED
  3. GLUCOCORTICOID [Concomitant]
     Indication: ARTHRITIS
  4. ARAVA [Concomitant]
     Indication: ARTHRITIS
  5. PROCORALAN [Concomitant]
     Indication: ARRHYTHMIA
  6. SYNTHROID [Concomitant]
     Indication: THYROID DISORDER
  7. NICORETTE [Suspect]
     Indication: SMOKING CESSATION THERAPY
     Dosage: 6GUM PER DAY
     Route: 002
     Dates: start: 20070101
  8. DIOVAN HCT [Concomitant]
     Indication: HYPERTENSION
  9. OMEGA 3-6-9 [Concomitant]
     Indication: BLOOD CHOLESTEROL INCREASED
  10. BONIVA [Concomitant]
     Indication: OSTEOPOROSIS
  11. NEXIUM [Concomitant]
     Indication: GASTRIC DISORDER

REACTIONS (5)
  - DRUG ADMINISTRATION ERROR [None]
  - NICOTINE DEPENDENCE [None]
  - INTENTIONAL DRUG MISUSE [None]
  - COUGH [None]
  - ADVERSE EVENT [None]
